FAERS Safety Report 5253900-7 (Version None)
Quarter: 2007Q1

REPORT INFORMATION
  Report Type: 
  Country: None (occurrence: None)
  Receive Date: 20070228
  Receipt Date: 20070228
  Transmission Date: 20070707
  Serious: Yes (Life-Threatening, Hospitalization, Disabling)
  Sender: FDA-Public Use
  Company Number: None

PATIENT
  Sex: Male
  Weight: 81.6475 kg

DRUGS (1)
  1. URECHOLINE [Suspect]
     Indication: DYSURIA
     Dosage: 25 MG ONE 3X'S DAY ORALLY
     Route: 048
     Dates: start: 20030401, end: 20031101

REACTIONS (2)
  - PUBIC PAIN [None]
  - RENAL COLIC [None]
